FAERS Safety Report 9659739 (Version 1)
Quarter: 2013Q4

REPORT INFORMATION
  Report Type: Spontaneous
  Country: US (occurrence: US)
  Receive Date: 20131031
  Receipt Date: 20131031
  Transmission Date: 20140711
  Serious: Yes (Hospitalization, Other)
  Sender: FDA-Public Use
  Company Number: US-PFIZER INC-2013307192

PATIENT
  Age: 60 Year
  Sex: Female
  Weight: 62.59 kg

DRUGS (2)
  1. CHANTIX [Suspect]
     Indication: SMOKING CESSATION THERAPY
     Dosage: 0.5 MG, 1X/DAY
     Dates: start: 2006, end: 2006
  2. OS-CAL [Concomitant]
     Indication: OSTEOPOROSIS
     Dosage: UNK, 3X/DAY

REACTIONS (7)
  - Cerebrovascular accident [Unknown]
  - Transient ischaemic attack [Unknown]
  - Hypoaesthesia [Unknown]
  - Diabetes mellitus [Unknown]
  - Vomiting [Unknown]
  - Malaise [Unknown]
  - Weight increased [Unknown]
